FAERS Safety Report 15097243 (Version 1)
Quarter: 2018Q3

REPORT INFORMATION
  Report Type: Spontaneous
  Country: JP (occurrence: JP)
  Receive Date: 20180702
  Receipt Date: 20180702
  Transmission Date: 20181010
  Serious: Yes (Other)
  Sender: FDA-Public Use
  Company Number: JP-ELI_LILLY_AND_COMPANY-JP201806003426

PATIENT
  Age: 65 Year
  Sex: Male

DRUGS (4)
  1. LEVOFOLINATE CALCIUM [Concomitant]
     Active Substance: LEVOLEUCOVORIN CALCIUM
     Indication: COLON CANCER STAGE IV
     Dosage: UNK
     Route: 041
     Dates: start: 20180426
  2. CYRAMZA [Suspect]
     Active Substance: RAMUCIRUMAB
     Indication: COLON CANCER STAGE IV
     Dosage: 8 MG/KG, UNK
     Route: 041
     Dates: start: 20180426, end: 20180517
  3. FLUOROURACIL. [Concomitant]
     Active Substance: FLUOROURACIL
     Indication: COLON CANCER STAGE IV
     Dosage: UNK
     Route: 041
     Dates: start: 20180426
  4. IRINOTECAN                         /01280202/ [Concomitant]
     Active Substance: IRINOTECAN
     Indication: COLON CANCER STAGE IV
     Dosage: UNK
     Route: 041
     Dates: start: 20180426

REACTIONS (3)
  - Proteinuria [Not Recovered/Not Resolved]
  - Hypertension [Unknown]
  - Generalised oedema [Not Recovered/Not Resolved]

NARRATIVE: CASE EVENT DATE: 201805
